FAERS Safety Report 9917838 (Version 2)
Quarter: 2014Q1

REPORT INFORMATION
  Report Type: Spontaneous
  Country: US (occurrence: US)
  Receive Date: 20140221
  Receipt Date: 20140221
  Transmission Date: 20141002
  Serious: Yes (Hospitalization)
  Sender: FDA-Public Use
  Company Number: US-GLAXOSMITHKLINE-A0857141A

PATIENT
  Age: 61 Year
  Sex: Female
  Weight: 72.3 kg

DRUGS (14)
  1. AVANDIA [Suspect]
     Indication: DIABETES MELLITUS
     Dosage: 8MG PER DAY
     Route: 048
     Dates: start: 199905, end: 200305
  2. LIPITOR [Concomitant]
  3. WELLBUTRIN [Concomitant]
  4. ZYPREXA [Concomitant]
  5. TUMS [Concomitant]
  6. ASPIRIN [Concomitant]
  7. TOPROL XL [Concomitant]
  8. ALBUTEROL MDI [Concomitant]
  9. LASIX [Concomitant]
  10. NORVASC [Concomitant]
  11. PREMARIN [Concomitant]
  12. NITROGLYCERIN [Concomitant]
     Route: 060
  13. MOM [Concomitant]
  14. TYLENOL [Concomitant]

REACTIONS (10)
  - Myocardial infarction [Not Recovered/Not Resolved]
  - Respiratory arrest [Unknown]
  - Cardiac arrest [Unknown]
  - Ventricular tachycardia [Unknown]
  - Renal failure [Unknown]
  - Hypoxia [Unknown]
  - Acute pulmonary oedema [Unknown]
  - Cardiac failure congestive [Unknown]
  - Coronary artery disease [Unknown]
  - Ischaemic cardiomyopathy [Unknown]
